FAERS Safety Report 8185530-1 (Version None)
Quarter: 2012Q1

REPORT INFORMATION
  Report Type: 
  Country: None (occurrence: None)
  Receive Date: 20120305
  Receipt Date: 20120224
  Transmission Date: 20120608
  Serious: Yes (Hospitalization)
  Sender: FDA-Public Use
  Company Number: TH-ABBOTT-12P-155-0909352-00

PATIENT
  Age: 40 Year
  Sex: Female

DRUGS (10)
  1. REYATAZ [Concomitant]
     Indication: HIV INFECTION
     Route: 048
     Dates: start: 20110322, end: 20110331
  2. REYATAZ [Concomitant]
     Route: 048
     Dates: start: 20110404, end: 20110418
  3. RITONAVIR [Suspect]
     Indication: HIV INFECTION
     Route: 048
     Dates: start: 20110322, end: 20110331
  4. REYATAZ [Concomitant]
     Route: 048
     Dates: start: 20110419, end: 20110616
  5. RITONAVIR [Suspect]
     Route: 048
     Dates: start: 20110419, end: 20110616
  6. RETROVIR [Concomitant]
     Indication: HIV INFECTION
     Route: 048
     Dates: start: 20110616
  7. RITONAVIR [Suspect]
     Route: 048
     Dates: start: 20110404
  8. KALETRA [Suspect]
     Indication: HIV INFECTION
     Route: 048
     Dates: start: 20110616
  9. INTELENCE [Concomitant]
     Indication: HIV INFECTION
     Route: 048
     Dates: start: 20110419, end: 20110614
  10. EPIVIR [Concomitant]
     Indication: HIV INFECTION
     Route: 048
     Dates: start: 20110322

REACTIONS (1)
  - PREMATURE RUPTURE OF MEMBRANES [None]
